FAERS Safety Report 9570395 (Version 5)
Quarter: 2013Q4

REPORT INFORMATION
  Report Type: Spontaneous
  Country: US (occurrence: US)
  Receive Date: 20131001
  Receipt Date: 20131126
  Transmission Date: 20140711
  Serious: Yes (Hospitalization, Other)
  Sender: FDA-Public Use
  Company Number: US-009507513-1309USA014056

PATIENT
  Age: 54 Year
  Sex: Male
  Weight: 72.56 kg

DRUGS (9)
  1. REBETOL [Suspect]
     Indication: HEPATITIS C
     Dosage: 1000 MG, QD
     Route: 048
     Dates: start: 20130906, end: 20131011
  2. PEGINTRON [Suspect]
     Indication: HEPATITIS C
     Dosage: 120 MICROGRAM, QW
     Dates: start: 20130906, end: 20131011
  3. VICTRELIS [Suspect]
     Indication: HEPATITIS C
     Dosage: 800 MG, TID
     Route: 048
     Dates: start: 20131004, end: 20131011
  4. PROCRIT [Concomitant]
     Dosage: 3 DOSES X 7000 UNITS, ONCE
     Dates: start: 20131004, end: 20131011
  5. ONDANSETRON [Concomitant]
     Dosage: 4 MG, PRN
     Dates: start: 20131002, end: 20131011
  6. FUROSEMIDE [Concomitant]
     Dosage: 40 MG, DAILY
  7. SPIRONOLACTONE [Concomitant]
     Dosage: 100 MG, DAILY
  8. CARISOPRODOL [Concomitant]
     Dosage: 1050 MG, DAILY
  9. FLUOXETINE [Concomitant]
     Dosage: 20 MG, DAILY

REACTIONS (11)
  - Ammonia increased [Unknown]
  - Platelet count decreased [Unknown]
  - Red blood cell count decreased [Recovering/Resolving]
  - Transfusion [Unknown]
  - Anaemia [Recovering/Resolving]
  - Thrombocytopenia [Unknown]
  - Confusional state [Unknown]
  - Vomiting [Unknown]
  - Nausea [Unknown]
  - Haemoglobin decreased [Unknown]
  - Hepatic encephalopathy [Recovered/Resolved]
